FAERS Safety Report 20617172 (Version 1)
Quarter: 2022Q1

REPORT INFORMATION
  Report Type: Spontaneous
  Country: IL (occurrence: IL)
  Receive Date: 20220321
  Receipt Date: 20220321
  Transmission Date: 20220423
  Serious: Yes (Other)
  Sender: FDA-Public Use
  Company Number: IL-NOVARTISPH-NVSC2022IL059623

PATIENT
  Age: 25 Year
  Sex: Male

DRUGS (2)
  1. CYCLOSPORINE [Suspect]
     Active Substance: CYCLOSPORINE
     Indication: Chronic graft versus host disease
     Dosage: UNK
     Route: 065
  2. PREDNISONE [Suspect]
     Active Substance: PREDNISONE
     Indication: Chronic graft versus host disease
     Dosage: UNK
     Route: 065

REACTIONS (10)
  - Chronic graft versus host disease in liver [Recovered/Resolved]
  - Chronic graft versus host disease oral [Recovered/Resolved]
  - Chronic graft versus host disease in eye [Unknown]
  - Chronic graft versus host disease in lung [Unknown]
  - Chronic graft versus host disease oral [Unknown]
  - Obliterative bronchiolitis [Unknown]
  - Dyspnoea exertional [Unknown]
  - Disease progression [Unknown]
  - Condition aggravated [Unknown]
  - Drug resistance [Unknown]
